FAERS Safety Report 9675140 (Version 3)
Quarter: 2014Q1

REPORT INFORMATION
  Report Type: Report from Study
  Country: US (occurrence: US)
  Receive Date: 20131107
  Receipt Date: 20140103
  Transmission Date: 20141002
  Serious: Yes (Disabling)
  Sender: FDA-Public Use
  Company Number: US-ELI_LILLY_AND_COMPANY-US200904006786

PATIENT
  Age: 64 Year
  Sex: Female
  Weight: 104.31 kg

DRUGS (18)
  1. LISPRO 25LIS75NPL KWIKPEN / MIRIOPEN [Suspect]
     Indication: TYPE 2 DIABETES MELLITUS
     Dosage: UNK
     Route: 065
  2. LISPRO 25LIS75NPL KWIKPEN / MIRIOPEN [Suspect]
     Dosage: 52 U, EACH MORNING
     Route: 065
  3. LISPRO 25LIS75NPL KWIKPEN / MIRIOPEN [Suspect]
     Dosage: 42 U, EACH EVENING
     Route: 065
  4. LISPRO 25LIS75NPL KWIKPEN / MIRIOPEN [Suspect]
     Indication: TYPE 2 DIABETES MELLITUS
     Dosage: UNK
     Route: 065
  5. ASPIRIN [Concomitant]
     Dosage: 81 MG, UNK
  6. POTASSIUM [Concomitant]
  7. LASIX [Concomitant]
  8. HYDROCHLOROTHIAZIDE [Concomitant]
  9. REGLAN [Concomitant]
     Indication: BOWEL MOVEMENT IRREGULARITY
  10. ATIVAN [Concomitant]
  11. ZOCOR [Concomitant]
  12. PERCOCET [Concomitant]
     Indication: PAIN IN EXTREMITY
  13. METFORMIN [Concomitant]
     Indication: PRODUCT USED FOR UNKNOWN INDICATION
     Route: 065
  14. FLOVENT [Concomitant]
  15. LOSARTIN [Concomitant]
  16. FERROUS GLUCONATE [Concomitant]
  17. DULCOLAX                           /00064401/ [Concomitant]
  18. VENTOLIN                           /00139501/ [Concomitant]

REACTIONS (8)
  - Arthritis [Not Recovered/Not Resolved]
  - Ligament disorder [Not Recovered/Not Resolved]
  - Dyspnoea [Unknown]
  - Sensation of heaviness [Unknown]
  - Pain in extremity [Unknown]
  - Muscular weakness [Unknown]
  - Blood glucose increased [Recovered/Resolved]
  - Incorrect drug dosage form administered [Unknown]
